FAERS Safety Report 9432620 (Version 1)
Quarter: 2013Q3

REPORT INFORMATION
  Report Type: Report from Study
  Country: BE (occurrence: BE)
  Receive Date: 20130731
  Receipt Date: 20130731
  Transmission Date: 20140515
  Serious: Yes (Other)
  Sender: FDA-Public Use
  Company Number: BE-BAYER-2013-091585

PATIENT
  Sex: 0

DRUGS (1)
  1. BETAFERON [Suspect]
     Dosage: UNK
     Dates: start: 2002, end: 20130728

REACTIONS (3)
  - Multiple sclerosis relapse [None]
  - Injection site reaction [None]
  - Skin fibrosis [None]
